FAERS Safety Report 8294296-6 (Version None)
Quarter: 2012Q2

REPORT INFORMATION
  Report Type: 
  Country: None (occurrence: None)
  Receive Date: 20120413
  Receipt Date: 20120329
  Transmission Date: 20120825
  Serious: Yes (Other)
  Sender: FDA-Public Use
  Company Number: US-DEXPHARM-20120156

PATIENT
  Age: 18 Year
  Sex: Female

DRUGS (3)
  1. ESOMEPRAZOLE MAGNESIUM [Suspect]
  2. TACROLIMUS [Suspect]
     Indication: RENAL TRANSPLANT
  3. OMEPRAZOLE [Suspect]

REACTIONS (1)
  - DRUG INTERACTION [None]
